FAERS Safety Report 24907259 (Version 1)
Quarter: 2025Q1

REPORT INFORMATION
  Report Type: Report from Study
  Country: DK (occurrence: DK)
  Receive Date: 20250130
  Receipt Date: 20250130
  Transmission Date: 20250408
  Serious: Yes (Hospitalization, Other)
  Sender: ABBVIE
  Company Number: DK-JNJFOC-20250129585

PATIENT
  Sex: Male

DRUGS (2)
  1. IBRUTINIB [Suspect]
     Active Substance: IBRUTINIB
     Indication: Mantle cell lymphoma
     Route: 048
     Dates: start: 20170213, end: 20170925
  2. RITUXIMAB [Suspect]
     Active Substance: RITUXIMAB
     Indication: Mantle cell lymphoma
     Route: 065

REACTIONS (4)
  - Pyrexia [Unknown]
  - Diarrhoea [Unknown]
  - Skin haemorrhage [Unknown]
  - Generalised oedema [Unknown]

NARRATIVE: CASE EVENT DATE: 20170321
